FAERS Safety Report 18278687 (Version 34)
Quarter: 2025Q2

REPORT INFORMATION
  Report Type: Report from Study
  Country: US (occurrence: US)
  Receive Date: 20200917
  Receipt Date: 20250630
  Transmission Date: 20250717
  Serious: Yes (Hospitalization, Other)
  Sender: TAKEDA
  Company Number: US-SHIRE-US202029830

PATIENT
  Age: 60 Year
  Sex: Male
  Weight: 73 kg

DRUGS (45)
  1. .ALPHA.1-PROTEINASE INHIBITOR HUMAN [Suspect]
     Active Substance: .ALPHA.1-PROTEINASE INHIBITOR HUMAN
     Indication: Alpha-1 antitrypsin deficiency
     Dosage: UNK, 1/WEEK
     Dates: start: 20090331
  2. .ALPHA.1-PROTEINASE INHIBITOR HUMAN [Suspect]
     Active Substance: .ALPHA.1-PROTEINASE INHIBITOR HUMAN
     Dosage: 60 MILLIGRAM/KILOGRAM, 1/WEEK
     Dates: start: 20090429
  3. PREDNISONE [Concomitant]
     Active Substance: PREDNISONE
  4. TRELEGY ELLIPTA [Concomitant]
     Active Substance: FLUTICASONE FUROATE\UMECLIDINIUM BROMIDE\VILANTEROL TRIFENATATE
  5. SUDAFED 12 HOUR [Concomitant]
     Active Substance: PSEUDOEPHEDRINE HYDROCHLORIDE
  6. TUMS [Concomitant]
     Active Substance: CALCIUM CARBONATE
  7. OMEPRAZOLE [Concomitant]
     Active Substance: OMEPRAZOLE
  8. ALLOPURINOL [Concomitant]
     Active Substance: ALLOPURINOL
  9. VITAMIN D3 [Concomitant]
     Active Substance: CHOLECALCIFEROL
  10. ALBUTEROL SULFATE [Concomitant]
     Active Substance: ALBUTEROL SULFATE
  11. MELATONIN [Concomitant]
     Active Substance: MELATONIN
  12. OXYGEN [Concomitant]
     Active Substance: OXYGEN
  13. MONTELUKAST [Concomitant]
     Active Substance: MONTELUKAST
  14. SULFACETAMIDE SODIUM [Concomitant]
     Active Substance: SULFACETAMIDE SODIUM
  15. Allergy relief [Concomitant]
  16. GUAIFENESIN DM [Concomitant]
     Active Substance: DEXTROMETHORPHAN\DEXTROMETHORPHAN HYDROBROMIDE\GUAIFENESIN
  17. DIPHENHYDRAMINE [Concomitant]
     Active Substance: DIPHENHYDRAMINE
     Indication: Product used for unknown indication
  18. SODIUM CHLORIDE [Concomitant]
     Active Substance: SODIUM CHLORIDE
     Indication: Product used for unknown indication
  19. EPINEPHRINE [Concomitant]
     Active Substance: EPINEPHRINE
     Indication: Product used for unknown indication
  20. MUCINEX [Concomitant]
     Active Substance: GUAIFENESIN
  21. XANAX [Concomitant]
     Active Substance: ALPRAZOLAM
  22. OMEPRAZOLE AND SODIUM BICARBONATE [Concomitant]
     Active Substance: OMEPRAZOLE\SODIUM BICARBONATE
     Indication: Product used for unknown indication
  23. HEPARIN [Concomitant]
     Active Substance: HEPARIN SODIUM
     Indication: Product used for unknown indication
  24. ASCORBIC ACID [Concomitant]
     Active Substance: ASCORBIC ACID
     Indication: Product used for unknown indication
  25. PULMICORT TURBUHALER [Concomitant]
     Active Substance: BUDESONIDE
     Indication: Product used for unknown indication
  26. IMIPRAMINE [Concomitant]
     Active Substance: IMIPRAMINE
     Indication: Product used for unknown indication
  27. TRAMADOL [Concomitant]
     Active Substance: TRAMADOL
     Indication: Product used for unknown indication
  28. NAPROXEN [Concomitant]
     Active Substance: NAPROXEN
     Indication: Product used for unknown indication
  29. ADVAIR HFA [Concomitant]
     Active Substance: FLUTICASONE PROPIONATE\SALMETEROL XINAFOATE
     Indication: Product used for unknown indication
  30. SINGULAIR [Concomitant]
     Active Substance: MONTELUKAST SODIUM
     Indication: Product used for unknown indication
  31. SPIRIVA [Concomitant]
     Active Substance: TIOTROPIUM BROMIDE MONOHYDRATE
     Indication: Product used for unknown indication
  32. ALLEGRA D-12 HOUR [Concomitant]
     Active Substance: FEXOFENADINE HYDROCHLORIDE\PSEUDOEPHEDRINE HYDROCHLORIDE
     Indication: Product used for unknown indication
  33. SERTRALINE [Concomitant]
     Active Substance: SERTRALINE HYDROCHLORIDE
     Indication: Product used for unknown indication
  34. FEXMID [Concomitant]
     Active Substance: CYCLOBENZAPRINE HYDROCHLORIDE
     Indication: Product used for unknown indication
  35. SODIUM BICARBONATE [Concomitant]
     Active Substance: SODIUM BICARBONATE
  36. AZITHROMYCIN [Concomitant]
     Active Substance: AZITHROMYCIN
  37. LEVOFLOXACIN [Concomitant]
     Active Substance: LEVOFLOXACIN
  38. DOXYCYCLINE HYCLATE [Concomitant]
     Active Substance: DOXYCYCLINE HYCLATE
  39. Neurivas [Concomitant]
  40. DIPHENHYDRAMINE HYDROCHLORIDE [Concomitant]
     Active Substance: DIPHENHYDRAMINE HYDROCHLORIDE
  41. FLONASE ALLERGY RELIEF [Concomitant]
     Active Substance: FLUTICASONE PROPIONATE
  42. MONTELUKAST SODIUM [Concomitant]
     Active Substance: MONTELUKAST SODIUM
  43. VITAMINS [Concomitant]
     Active Substance: VITAMINS
  44. ALBUTEROL SULFATE [Concomitant]
     Active Substance: ALBUTEROL SULFATE
  45. ONDANSETRON HYDROCHLORIDE [Concomitant]
     Active Substance: ONDANSETRON HYDROCHLORIDE

REACTIONS (47)
  - Large intestinal obstruction [Unknown]
  - Device related bacteraemia [Unknown]
  - Infection [Unknown]
  - Pancreatic carcinoma [Unknown]
  - Rheumatoid arthritis [Unknown]
  - COVID-19 pneumonia [Unknown]
  - Staphylococcal bacteraemia [Unknown]
  - Pneumonia [Unknown]
  - Neoplasm malignant [Unknown]
  - Abscess [Unknown]
  - Infusion related reaction [Unknown]
  - Tremor [Unknown]
  - Body temperature abnormal [Unknown]
  - Illness [Unknown]
  - Secretion discharge [Unknown]
  - Seasonal allergy [Unknown]
  - Nasopharyngitis [Recovered/Resolved]
  - Multiple allergies [Unknown]
  - Musculoskeletal chest pain [Recovering/Resolving]
  - Pulmonary pain [Recovering/Resolving]
  - Bowel movement irregularity [Recovering/Resolving]
  - Urine output decreased [Recovering/Resolving]
  - Depressed mood [Unknown]
  - Arthralgia [Recovering/Resolving]
  - Catheter site swelling [Unknown]
  - Hordeolum [Unknown]
  - Insurance issue [Unknown]
  - Device infusion issue [Unknown]
  - Inability to afford medication [Unknown]
  - Inappropriate schedule of product administration [Unknown]
  - Product use issue [Unknown]
  - Off label use [Unknown]
  - Product dose omission issue [Unknown]
  - Weight decreased [Unknown]
  - Appetite disorder [Recovering/Resolving]
  - Chills [Unknown]
  - Migraine [Recovering/Resolving]
  - Chest discomfort [Recovering/Resolving]
  - Sinusitis [Unknown]
  - Chronic obstructive pulmonary disease [Unknown]
  - Lung disorder [Unknown]
  - Asthenia [Recovering/Resolving]
  - Bronchitis [Recovered/Resolved]
  - Cough [Recovering/Resolving]
  - Upper respiratory tract infection [Unknown]
  - Headache [Recovering/Resolving]
  - Nausea [Recovering/Resolving]

NARRATIVE: CASE EVENT DATE: 20220211
